FAERS Safety Report 7299332-1 (Version None)
Quarter: 2011Q1

REPORT INFORMATION
  Report Type: 
  Country: None (occurrence: None)
  Receive Date: 20110217
  Receipt Date: 20110214
  Transmission Date: 20110831
  Serious: Yes (Hospitalization, Congenital Anomaly)
  Sender: FDA-Public Use
  Company Number: A0871949A

PATIENT
  Sex: Male
  Weight: 4 kg

DRUGS (2)
  1. PAXIL [Suspect]
     Indication: PANIC ATTACK
     Dosage: 20MG PER DAY
     Route: 064
     Dates: start: 20010504, end: 20010730
  2. ZOLOFT [Concomitant]
     Dates: start: 20010801

REACTIONS (3)
  - CRANIOSYNOSTOSIS [None]
  - SCAPHOCEPHALY [None]
  - DRUG EXPOSURE DURING PREGNANCY [None]
